FAERS Safety Report 10073105 (Version 2)
Quarter: 2014Q2

REPORT INFORMATION
  Report Type: Report from Study
  Country: VE (occurrence: VE)
  Receive Date: 20140411
  Receipt Date: 20140416
  Transmission Date: 20141212
  Serious: Yes (Hospitalization, Other)
  Sender: FDA-Public Use
  Company Number: PHHY2014VE044467

PATIENT
  Age: 49 Year
  Sex: Female

DRUGS (3)
  1. ACLASTA [Suspect]
     Indication: OSTEOPENIA
     Dosage: 5 MG, ANNUAL
     Route: 042
     Dates: start: 2011, end: 2012
  2. ACLASTA [Suspect]
     Indication: OFF LABEL USE
  3. CALCIUM [Concomitant]
     Dosage: UNK UKN, UNK

REACTIONS (2)
  - Bile duct obstruction [Recovered/Resolved]
  - Adenocarcinoma pancreas [Not Recovered/Not Resolved]
